FAERS Safety Report 7281728-5 (Version None)
Quarter: 2011Q1

REPORT INFORMATION
  Report Type: 
  Country: None (occurrence: None)
  Receive Date: 20110208
  Receipt Date: 20100326
  Transmission Date: 20110831
  Serious: Yes (Other)
  Sender: FDA-Public Use
  Company Number: US-PFIZER INC-2010039975

PATIENT
  Sex: Female
  Weight: 52.154 kg

DRUGS (1)
  1. SUTENT [Suspect]
     Indication: GASTROINTESTINAL STROMAL TUMOUR
     Dosage: 50 MG, 4 WEEKS ON/2 WEEKS OFF
     Dates: start: 20090701

REACTIONS (4)
  - PLATELET COUNT DECREASED [None]
  - PALMAR-PLANTAR ERYTHRODYSAESTHESIA SYNDROME [None]
  - HYPERTENSION [None]
  - WHITE BLOOD CELL COUNT DECREASED [None]
